FAERS Safety Report 24042315 (Version 2)
Quarter: 2024Q3

REPORT INFORMATION
  Report Type: Spontaneous
  Country: SK (occurrence: SK)
  Receive Date: 20240702
  Receipt Date: 20240709
  Transmission Date: 20241016
  Serious: Yes (Life-Threatening, Hospitalization, Other)
  Sender: SANDOZ
  Company Number: SK-SA-2014SA094770

PATIENT
  Age: 72 Year
  Sex: Female
  Weight: 70 kg

DRUGS (15)
  1. METHOTREXATE [Suspect]
     Active Substance: METHOTREXATE
     Indication: Rheumatoid arthritis
     Dosage: UNK
     Route: 065
  2. METAMIZOLE [Suspect]
     Active Substance: METAMIZOLE
     Indication: Product used for unknown indication
     Dosage: 2500 MG, 3X (7500 MG, 3 X 2500 MG (3 DOSAGE FORM DAILY))
     Route: 042
  3. FENPIVERINIUM [Concomitant]
     Indication: Muscle spasms
     Dosage: 0.1 MG (0.1 MG AT DOSE 3 DOSAGE FORM)
     Route: 065
  4. FENPIVERINIUM [Concomitant]
     Dosage: 0.1 MG AT DOSE 3 DOSAGE FORM
     Route: 065
  5. FENPIVERINIUM [Concomitant]
     Indication: Analgesic therapy
     Dosage: 3 DF
     Route: 065
  6. FENPIVERINIUM [Concomitant]
     Indication: Product used for unknown indication
     Dosage: 3 DF
     Route: 065
  7. PITOFENONE [Concomitant]
     Active Substance: PITOFENONE
     Indication: Muscle spasms
     Dosage: 10 MG AT DOSE 3 DOSAGE FORM
     Route: 065
  8. PITOFENONE [Concomitant]
     Active Substance: PITOFENONE
     Indication: Muscle spasms
     Dosage: 10 MG AT DOSE 3 DOSAGE FORM
     Route: 065
  9. PITOFENONE [Concomitant]
     Active Substance: PITOFENONE
     Dosage: 3 DF (3 ? 10 MG)
     Route: 065
  10. THIETHYLPERAZINE [Concomitant]
     Active Substance: THIETHYLPERAZINE
     Dosage: 3 DF (3 ? 6.5 MG)
     Route: 065
  11. THIETHYLPERAZINE [Concomitant]
     Active Substance: THIETHYLPERAZINE
     Dosage: 6 MG (6 MG AT DOSE 3 DOSAGE FORM)
     Route: 065
  12. THIETHYLPERAZINE [Concomitant]
     Active Substance: THIETHYLPERAZINE
     Indication: Product used for unknown indication
     Dosage: 6 MG AT DOSE 3 DOSAGE FORM
     Route: 065
  13. TRIMECAINE [Concomitant]
     Active Substance: TRIMECAINE
     Dosage: 10 MG (10 MG AT DOSE 2 DOSAGE FORM)
     Route: 065
  14. TRIMECAINE [Concomitant]
     Active Substance: TRIMECAINE
     Indication: Product used for unknown indication
     Dosage: 10 MG AT DOSE 2 DOSAGE FORM
     Route: 065
  15. TRIMECAINE [Concomitant]
     Active Substance: TRIMECAINE
     Dosage: 3 DF (3 ? 10 MG)
     Route: 065

REACTIONS (10)
  - Blood disorder [Recovering/Resolving]
  - Pancytopenia [Recovered/Resolved]
  - Agranulocytosis [Recovering/Resolving]
  - Leukopenia [Recovered/Resolved]
  - Extra dose administered [Unknown]
  - Overdose [Unknown]
  - Hypocoagulable state [Recovered/Resolved]
  - Haematotoxicity [Recovering/Resolving]
  - Headache [Recovering/Resolving]
  - Somnolence [Recovering/Resolving]
